FAERS Safety Report 6125122-9 (Version None)
Quarter: 2009Q1

REPORT INFORMATION
  Report Type: 
  Country: None (occurrence: None)
  Receive Date: 20090318
  Receipt Date: 20090303
  Transmission Date: 20090719
  Serious: Yes (Hospitalization, Disabling)
  Sender: FDA-Public Use
  Company Number: APP200900108

PATIENT
  Age: 16 Year
  Sex: Male

DRUGS (1)
  1. LIDOCAINE HCL INJ [Suspect]
     Indication: ASPIRATION JOINT
     Dosage: 1 ML, ONCE
     Dates: start: 20081101, end: 20081101

REACTIONS (1)
  - OSTEOMYELITIS [None]
